FAERS Safety Report 9726591 (Version 1)
Quarter: 2013Q4

REPORT INFORMATION
  Report Type: Report from Study
  Country: IT (occurrence: IT)
  Receive Date: 20131203
  Receipt Date: 20131203
  Transmission Date: 20140711
  Serious: Yes (Other)
  Sender: FDA-Public Use
  Company Number: IT-GLAXOSMITHKLINE-B0948500A

PATIENT
  Sex: 0

DRUGS (1)
  1. PAZOPANIB [Suspect]
     Indication: NEOPLASM
     Dosage: 800MG PER DAY
     Route: 065
     Dates: start: 201205

REACTIONS (2)
  - Cardiac failure [Unknown]
  - Haematotoxicity [Unknown]
